FAERS Safety Report 23172423 (Version 1)
Quarter: 2023Q4

REPORT INFORMATION
  Report Type: Spontaneous
  Country: US (occurrence: None)
  Receive Date: 20231110
  Receipt Date: 20231110
  Transmission Date: 20240109
  Serious: Yes (Other)
  Sender: FDA-Public Use
  Company Number: None

PATIENT
  Age: 72 Year
  Sex: Female
  Weight: 89 kg

DRUGS (1)
  1. LUMASON [Suspect]
     Active Substance: SULFUR HEXAFLUORIDE
     Route: 040
     Dates: start: 20231011, end: 20231011

REACTIONS (4)
  - Nausea [None]
  - Cardio-respiratory arrest [None]
  - Procedural complication [None]
  - Contrast media reaction [None]

NARRATIVE: CASE EVENT DATE: 20231011
